FAERS Safety Report 10468720 (Version 1)
Quarter: 2014Q3

REPORT INFORMATION
  Report Type: Spontaneous
  Country: FR (occurrence: FR)
  Receive Date: 20140922
  Receipt Date: 20140922
  Transmission Date: 20150326
  Serious: Yes (Life-Threatening, Other)
  Sender: FDA-Public Use
  Company Number: FR-BRISTOL-MYERS SQUIBB COMPANY-21398607

PATIENT
  Age: 83 Year
  Sex: Female

DRUGS (6)
  1. BURINEX [Concomitant]
     Active Substance: BUMETANIDE
  2. APRANAX [Suspect]
     Active Substance: NAPROXEN
     Dosage: LAST DOSE ON: 01SEP14.
     Route: 048
     Dates: start: 20140827
  3. DIFFU-K [Concomitant]
     Active Substance: POTASSIUM CHLORIDE
  4. COUMADINE [Suspect]
     Active Substance: WARFARIN SODIUM
     Dosage: LAST DOSE ON: 29AUG14.
  5. HEMIGOXINE NATIVELLE [Concomitant]
     Active Substance: DIGOXIN
  6. ZOLPIDEM [Concomitant]
     Active Substance: ZOLPIDEM\ZOLPIDEM TARTRATE

REACTIONS (4)
  - Uterine haemorrhage [Recovering/Resolving]
  - Endometrial cancer [Unknown]
  - Anaemia [Recovering/Resolving]
  - Cardiac failure [Recovering/Resolving]

NARRATIVE: CASE EVENT DATE: 201404
